FAERS Safety Report 12948852 (Version 1)
Quarter: 2016Q4

REPORT INFORMATION
  Report Type: Spontaneous
  Country: HR (occurrence: HR)
  Receive Date: 20161116
  Receipt Date: 20161116
  Transmission Date: 20170207
  Serious: Yes (Hospitalization)
  Sender: FDA-Public Use
  Company Number: HR-PFIZER INC-2016531663

PATIENT
  Age: 32 Year
  Sex: Female

DRUGS (1)
  1. PROSTIN [Suspect]
     Active Substance: ALPROSTADIL
     Indication: ABORTION MISSED
     Dosage: 0.25 MG, UNK
     Route: 030

REACTIONS (8)
  - Fall [None]
  - Foetal death [None]
  - Bradycardia [Recovered/Resolved]
  - Hypotension [None]
  - Leukocytosis [Recovered/Resolved]
  - Chest discomfort [None]
  - Exposure during pregnancy [None]
  - Somnolence [None]
